FAERS Safety Report 8523479-2 (Version None)
Quarter: 2012Q3

REPORT INFORMATION
  Report Type: 
  Country: None (occurrence: None)
  Receive Date: 20120720
  Receipt Date: 20120710
  Transmission Date: 20120928
  Serious: Yes (Death, Hospitalization)
  Sender: FDA-Public Use
  Company Number: AR-PERRIGO-12AR005956

PATIENT
  Age: 80 Year
  Sex: Female

DRUGS (1)
  1. NAPROXEN SODIUM [Suspect]
     Indication: PYREXIA
     Dosage: 375 MG, BID
     Route: 065

REACTIONS (13)
  - TACHYPNOEA [None]
  - SHOCK HAEMORRHAGIC [None]
  - MELAENA [None]
  - HYPERHIDROSIS [None]
  - ABDOMINAL PAIN UPPER [None]
  - UPPER GASTROINTESTINAL HAEMORRHAGE [None]
  - DYSPNOEA [None]
  - TACHYCARDIA [None]
  - DRUG ADMINISTRATION ERROR [None]
  - GASTRIC ULCER [None]
  - HAEMATOCHEZIA [None]
  - VOMITING [None]
  - HYPOVOLAEMIC SHOCK [None]
